FAERS Safety Report 24659211 (Version 3)
Quarter: 2025Q1

REPORT INFORMATION
  Report Type: Spontaneous
  Country: US (occurrence: US)
  Receive Date: 20241125
  Receipt Date: 20250130
  Transmission Date: 20250409
  Serious: Yes (Other)
  Sender: PFIZER
  Company Number: US-PFIZER INC-PV202400151746

PATIENT
  Sex: Female

DRUGS (2)
  1. DEPO-PROVERA [Suspect]
     Active Substance: MEDROXYPROGESTERONE ACETATE
     Indication: Contraception
     Route: 030
     Dates: start: 2002, end: 202108
  2. DEPO-PROVERA [Suspect]
     Active Substance: MEDROXYPROGESTERONE ACETATE
     Indication: Contraception
     Route: 058
     Dates: start: 202111, end: 202304

REACTIONS (2)
  - Meningioma [Not Recovered/Not Resolved]
  - Intraosseous meningioma [Not Recovered/Not Resolved]

NARRATIVE: CASE EVENT DATE: 20230101
